FAERS Safety Report 22187104 (Version 1)
Quarter: 2023Q2

REPORT INFORMATION
  Report Type: Spontaneous
  Country: JP (occurrence: JP)
  Receive Date: 20230407
  Receipt Date: 20230407
  Transmission Date: 20230722
  Serious: Yes (Other)
  Sender: FDA-Public Use
  Company Number: JP-TAKEDA-2023TUS035422

PATIENT
  Age: 13 Year
  Sex: Female

DRUGS (1)
  1. MIDODRINE HYDROCHLORIDE [Suspect]
     Active Substance: MIDODRINE HYDROCHLORIDE
     Indication: Orthostatic intolerance
     Dosage: 96 MILLIGRAM, QD
     Route: 048

REACTIONS (3)
  - Overdose [Unknown]
  - Hypertension [Unknown]
  - Bradycardia [Recovered/Resolved]
